FAERS Safety Report 4855109-5 (Version None)
Quarter: 2005Q4

REPORT INFORMATION
  Report Type: 
  Country: None (occurrence: None)
  Receive Date: 20051214
  Receipt Date: 20051202
  Transmission Date: 20060501
  Serious: Yes (Hospitalization, Other)
  Sender: FDA-Public Use
  Company Number: 2005158207

PATIENT
  Sex: Female
  Weight: 64.8644 kg

DRUGS (7)
  1. NORVASC [Suspect]
     Indication: HYPERTENSION
     Dosage: 7.5 MG (2.5 MG, TID INTERVAL: EVERY DAY),
  2. LIPITOR [Suspect]
     Indication: BLOOD CHOLESTEROL
     Dosage: 40 MG (20 MG, DAILY INTERVAL:  EVERY DAY)
  3. MOBIC [Suspect]
     Indication: ILL-DEFINED DISORDER
     Dosage: (7.5 MG)
  4. CATAPRES [Suspect]
     Indication: BLOOD PRESSURE
     Dosage: (0.2 MG), TRANSDERMAL
     Route: 062
  5. DIOVAN [Suspect]
     Indication: BLOOD PRESSURE
     Dates: start: 20051028
  6. CELEXA [Concomitant]
  7. HYDROCHLOROTHIAZIDE [Concomitant]

REACTIONS (14)
  - BLINDNESS UNILATERAL [None]
  - BLOOD CHOLESTEROL INCREASED [None]
  - BLOOD PRESSURE INCREASED [None]
  - CAROTID ARTERY OCCLUSION [None]
  - CATARACT [None]
  - CATARACT OPERATION COMPLICATION [None]
  - CEREBRAL HAEMORRHAGE [None]
  - CEREBROVASCULAR ACCIDENT [None]
  - CONDITION AGGRAVATED [None]
  - EYELID DISORDER [None]
  - RETINAL VASCULAR DISORDER [None]
  - RETINAL VASCULAR THROMBOSIS [None]
  - THYROID NEOPLASM [None]
  - VISUAL DISTURBANCE [None]
